FAERS Safety Report 5432993-8 (Version None)
Quarter: 2007Q3

REPORT INFORMATION
  Report Type: 
  Country: None (occurrence: None)
  Receive Date: 20070831
  Receipt Date: 20070821
  Transmission Date: 20080115
  Serious: Yes (Other)
  Sender: FDA-Public Use
  Company Number: PHEH2007US11517

PATIENT
  Sex: Male

DRUGS (1)
  1. FAMVIR [Suspect]
     Route: 048

REACTIONS (1)
  - CONVULSION [None]
